FAERS Safety Report 9595838 (Version 3)
Quarter: 2013Q4

REPORT INFORMATION
  Report Type: Spontaneous
  Country: JP (occurrence: JP)
  Receive Date: 20131004
  Receipt Date: 20131118
  Transmission Date: 20140711
  Serious: Yes (Hospitalization)
  Sender: FDA-Public Use
  Company Number: JP-SA-2013SA097297

PATIENT
  Age: 65 Year
  Sex: Male
  Weight: 52 kg

DRUGS (22)
  1. ELPLAT [Suspect]
     Indication: COLON CANCER
     Dosage: FORM:INFUSION SOLUTION INJECTION
     Route: 041
     Dates: start: 20130613, end: 20130613
  2. ELPLAT [Suspect]
     Indication: COLON CANCER
     Dosage: FORM:INFUSION SOLUTION INJECTION
     Route: 041
     Dates: start: 20130704, end: 20130704
  3. ELPLAT [Suspect]
     Indication: COLON CANCER
     Dosage: FORM:INFUSION SOLUTION INJECTION
     Route: 041
     Dates: start: 20130725, end: 20130725
  4. ELPLAT [Suspect]
     Indication: COLON CANCER
     Dosage: FORM:INFUSION SOLUTION INJECTION
     Route: 041
     Dates: start: 20130815, end: 20130815
  5. ELPLAT [Suspect]
     Indication: COLON CANCER
     Dosage: FORM:INFUSION SOLUTION INJECTION
     Route: 041
     Dates: start: 20130905, end: 20130905
  6. XELODA [Suspect]
     Indication: COLON CANCER
     Route: 048
     Dates: start: 20130613, end: 20130626
  7. XELODA [Suspect]
     Indication: COLON CANCER
     Route: 048
     Dates: start: 20130704, end: 20130717
  8. XELODA [Suspect]
     Indication: COLON CANCER
     Route: 048
     Dates: start: 20130725, end: 20130807
  9. XELODA [Suspect]
     Indication: COLON CANCER
     Route: 048
     Dates: start: 20130815, end: 20130828
  10. XELODA [Suspect]
     Indication: COLON CANCER
     Route: 048
     Dates: start: 20130905, end: 20130918
  11. DECADRON [Concomitant]
     Dates: start: 20130613, end: 20130907
  12. KYTRIL [Concomitant]
     Dates: start: 20130613, end: 20130905
  13. EMEND [Concomitant]
     Dates: start: 20130613, end: 20130907
  14. METHYCOBAL [Concomitant]
     Dates: start: 20130905, end: 20130918
  15. VOLTAREN [Concomitant]
     Dates: start: 20130922, end: 20130922
  16. BIOFERMIN R [Concomitant]
     Dosage: FORM: POWDER ((EXCEPT (DPO))
     Dates: start: 20130922, end: 20130922
  17. FOSMICIN [Concomitant]
     Dates: start: 20130922, end: 20130922
  18. GASTER [Concomitant]
     Dates: start: 20130922, end: 20130922
  19. PENTAZOCINE [Concomitant]
     Dates: start: 20130922, end: 20130923
  20. ATARAX-P [Concomitant]
     Dates: start: 20130922, end: 20130923
  21. LOXONIN [Concomitant]
     Dates: start: 20130922, end: 20130922
  22. MUCOSTA [Concomitant]
     Dates: start: 20130922, end: 20130922

REACTIONS (3)
  - Abdominal pain [Not Recovered/Not Resolved]
  - Vomiting [Not Recovered/Not Resolved]
  - Neuropathy peripheral [Unknown]
